FAERS Safety Report 6043700-2 (Version None)
Quarter: 2009Q1

REPORT INFORMATION
  Report Type: 
  Country: None (occurrence: None)
  Receive Date: 20090120
  Receipt Date: 20090107
  Transmission Date: 20090719
  Serious: Yes (Other)
  Sender: FDA-Public Use
  Company Number: PHEH2009US00677

PATIENT
  Sex: Female

DRUGS (7)
  1. AREDIA [Suspect]
     Indication: MULTIPLE MYELOMA
     Dosage: 90 MG, QMO
     Dates: start: 20010901, end: 20031001
  2. ZOMETA [Suspect]
     Indication: MULTIPLE MYELOMA
     Dosage: 4 MG, QMO
     Dates: start: 20031101, end: 20080201
  3. TOPROL-XL [Concomitant]
  4. SYNTHROID [Concomitant]
  5. ZYRTEC [Concomitant]
  6. ASPIRIN [Concomitant]
  7. CALCIUM [Concomitant]

REACTIONS (2)
  - BONE DISORDER [None]
  - GINGIVAL INFECTION [None]
